FAERS Safety Report 15358453 (Version 3)
Quarter: 2018Q4

REPORT INFORMATION
  Report Type: Report from Study
  Country: US (occurrence: US)
  Receive Date: 20180906
  Receipt Date: 20181008
  Transmission Date: 20190204
  Serious: Yes (Other)
  Sender: FDA-Public Use
  Company Number: US-JNJFOC-20180904249

PATIENT
  Age: 61 Year
  Sex: Female

DRUGS (18)
  1. TOCOPHEROL [Concomitant]
     Active Substance: TOCOPHEROL
  2. METRONIDAZOLE. [Concomitant]
     Active Substance: METRONIDAZOLE
  3. VALTREX [Concomitant]
     Active Substance: VALACYCLOVIR HYDROCHLORIDE
  4. TOPROL XL [Concomitant]
     Active Substance: METOPROLOL SUCCINATE
  5. SYNTHROID [Concomitant]
     Active Substance: LEVOTHYROXINE SODIUM
  6. CALCIUM W/COLECALCIFEROL [Concomitant]
     Active Substance: CALCIUM\CHOLECALCIFEROL
  7. LIDOCAINE. [Concomitant]
     Active Substance: LIDOCAINE
  8. CENTRUM [Concomitant]
     Active Substance: VITAMINS
  9. SINGULAIR [Concomitant]
     Active Substance: MONTELUKAST SODIUM
  10. IMBRUVICA [Suspect]
     Active Substance: IBRUTINIB
     Indication: CHRONIC LYMPHOCYTIC LEUKAEMIA
     Route: 048
     Dates: start: 20180406
  11. SILYBUM MARIANUM [Concomitant]
     Active Substance: DIETARY SUPPLEMENT\HERBALS\MILK THISTLE
  12. XANAX [Concomitant]
     Active Substance: ALPRAZOLAM
  13. GABAPENTIN. [Concomitant]
     Active Substance: GABAPENTIN
  14. CHONDROITIN SULFATE W/GLUCOSAMINE [Concomitant]
  15. COENZYME Q10 [Concomitant]
     Active Substance: UBIDECARENONE
  16. ASPIRIN. [Concomitant]
     Active Substance: ASPIRIN
     Dosage: 81 MG, UNK
  17. PLANTAGO OVATA [Concomitant]
     Active Substance: HERBALS\PLANTAGO OVATA LEAF
  18. ALLOPURINOL. [Concomitant]
     Active Substance: ALLOPURINOL

REACTIONS (2)
  - Ocular hyperaemia [Not Recovered/Not Resolved]
  - Contusion [Recovered/Resolved]

NARRATIVE: CASE EVENT DATE: 201808
